FAERS Safety Report 9638636 (Version 1)
Quarter: 2013Q4

REPORT INFORMATION
  Report Type: Spontaneous
  Country: US (occurrence: US)
  Receive Date: 20131022
  Receipt Date: 20131022
  Transmission Date: 20140711
  Serious: No
  Sender: FDA-Public Use
  Company Number: US-BRISTOL-MYERS SQUIBB COMPANY-19413046

PATIENT
  Sex: Female

DRUGS (1)
  1. ELIQUIS [Suspect]
     Indication: CEREBROVASCULAR ACCIDENT

REACTIONS (5)
  - Depressed level of consciousness [Unknown]
  - Disorientation [Unknown]
  - Decreased appetite [Unknown]
  - Gait disturbance [Unknown]
  - Tremor [Unknown]
